FAERS Safety Report 9549103 (Version 2)
Quarter: 2013Q3

REPORT INFORMATION
  Report Type: Report from Study
  Country: DE (occurrence: DE)
  Receive Date: 20130924
  Receipt Date: 20130924
  Transmission Date: 20140515
  Serious: Yes (Hospitalization)
  Sender: FDA-Public Use
  Company Number: DE-ABBVIE-13P-062-1102429-00

PATIENT
  Age: 73 Year
  Sex: Female
  Weight: 62 kg

DRUGS (8)
  1. HUMIRA [Suspect]
     Indication: RHEUMATOID ARTHRITIS
     Route: 058
     Dates: start: 20070504, end: 201304
  2. HUMIRA [Suspect]
     Route: 058
     Dates: start: 201306
  3. METHOTREXATE [Concomitant]
     Indication: RHEUMATOID ARTHRITIS
  4. CALCIUM + VITAMIN D [Concomitant]
     Indication: PRODUCT USED FOR UNKNOWN INDICATION
  5. MELOXICAM [Concomitant]
     Indication: PRODUCT USED FOR UNKNOWN INDICATION
  6. PREDNISOLONE [Concomitant]
     Indication: RHEUMATOID ARTHRITIS
  7. THYROXIN [Concomitant]
     Indication: HYPOTHYROIDISM
  8. BISOPROLOL [Concomitant]
     Indication: HYPERTENSION

REACTIONS (4)
  - Inflammation [Recovered/Resolved]
  - Purulent discharge [Recovered/Resolved]
  - Rheumatoid arthritis [Recovered/Resolved]
  - Rash [Recovered/Resolved]
